FAERS Safety Report 8909871 (Version 1)
Quarter: 2012Q4

REPORT INFORMATION
  Report Type: 
  Country: BR (occurrence: BR)
  Receive Date: 20121115
  Receipt Date: 20121115
  Transmission Date: 20130627
  Serious: Yes (Hospitalization, Other)
  Sender: FDA-Public Use
  Company Number: BR-PFIZER INC-2012270757

PATIENT
  Age: 23 Year
  Sex: Female

DRUGS (3)
  1. PRISTIQ [Suspect]
     Indication: HEADACHE
     Dosage: 50mg/ at night
     Route: 048
     Dates: start: 20120726, end: 20120910
  2. PRISTIQ [Suspect]
     Indication: ANXIETY DISORDER
  3. CYCLOBENZAPRINE [Concomitant]
     Dosage: UNK

REACTIONS (3)
  - Complex partial seizures [Recovered/Resolved]
  - Partial seizures with secondary generalisation [Recovered/Resolved]
  - Off label use [Recovered/Resolved]
